FAERS Safety Report 5213602-X (Version None)
Quarter: 2007Q1

REPORT INFORMATION
  Report Type: 
  Country: None (occurrence: None)
  Receive Date: 20070119
  Receipt Date: 20070116
  Transmission Date: 20070707
  Serious: Yes (Death)
  Sender: FDA-Public Use
  Company Number: US-ROXANE LABORATORIES, INC-2007-DE-00287GD

PATIENT
  Age: 61 Year
  Sex: Female

DRUGS (5)
  1. SERTRALINE [Suspect]
     Route: 048
  2. PARACETAMOL [Suspect]
  3. NIFEDIPINE [Suspect]
     Dosage: 167 TABLETS WERE RETRIEVED FROM THE PATIENT'S STOMACH
     Route: 048
  4. VENLAFAXINE HCL [Suspect]
     Route: 048
  5. ATORVASTATIN CALCIUM [Suspect]
     Route: 048

REACTIONS (8)
  - BEZOAR [None]
  - BRADYCARDIA [None]
  - HYPOTENSION [None]
  - INTENTIONAL DRUG MISUSE [None]
  - LOSS OF CONSCIOUSNESS [None]
  - MULTI-ORGAN FAILURE [None]
  - RESPIRATORY RATE DECREASED [None]
  - UNRESPONSIVE TO STIMULI [None]
